FAERS Safety Report 6420090-4 (Version None)
Quarter: 2009Q4

REPORT INFORMATION
  Report Type: 
  Country: None (occurrence: None)
  Receive Date: 20091029
  Receipt Date: 20091021
  Transmission Date: 20100525
  Serious: Yes (Hospitalization, Other)
  Sender: FDA-Public Use
  Company Number: DE-PFIZER INC-2009274126

PATIENT
  Age: 71 Year

DRUGS (4)
  1. CELEBREX [Suspect]
     Indication: FACET JOINT SYNDROME
     Dosage: 400 MG/DAY
     Route: 048
     Dates: start: 20090710, end: 20090827
  2. CELEBREX [Suspect]
     Indication: INTERVERTEBRAL DISC PROTRUSION
     Dosage: 200 MG, 2X/DAY
     Route: 048
     Dates: start: 20070901
  3. NEBILET [Concomitant]
     Indication: HYPERTENSION
     Dosage: UNK
  4. ASPIRIN [Concomitant]
     Dosage: 100 MG, 1X/DAY

REACTIONS (3)
  - HYPERTENSIVE HEART DISEASE [None]
  - NEPHROTIC SYNDROME [None]
  - SINUS BRADYCARDIA [None]
